FAERS Safety Report 4560028-8 (Version None)
Quarter: 2005Q1

REPORT INFORMATION
  Report Type: 
  Country: None (occurrence: None)
  Receive Date: 20050125
  Receipt Date: 20050113
  Transmission Date: 20050727
  Serious: Yes (Other)
  Sender: FDA-Public Use
  Company Number: US-JNJFOC-20050103405

PATIENT
  Sex: Female
  Weight: 104.33 kg

DRUGS (16)
  1. INFLIXIMAB [Suspect]
     Indication: RHEUMATOID ARTHRITIS
     Route: 042
  2. FORTEN [Concomitant]
  3. METHOTREXATE [Concomitant]
  4. ELAVIL [Concomitant]
  5. PLAQUENIL [Concomitant]
  6. LASIX [Concomitant]
  7. FLEXERIL [Concomitant]
  8. NEXIUM [Concomitant]
  9. VITAMIN E [Concomitant]
  10. CALCIUM GLUCONATE [Concomitant]
  11. TYLENOL [Concomitant]
  12. VICODIN [Concomitant]
  13. VICODIN [Concomitant]
  14. FOLIC ACID [Concomitant]
  15. POTASSIUM [Concomitant]
  16. AZULFADINE [Concomitant]

REACTIONS (1)
  - BASAL CELL CARCINOMA [None]
